FAERS Safety Report 25323008 (Version 1)
Quarter: 2025Q2

REPORT INFORMATION
  Report Type: Spontaneous
  Country: HR (occurrence: HR)
  Receive Date: 20250516
  Receipt Date: 20250516
  Transmission Date: 20250717
  Serious: Yes (Hospitalization, Other)
  Sender: ACCORD
  Company Number: HR-Accord-484910

PATIENT
  Age: 6 Year
  Sex: Male

DRUGS (11)
  1. CARBOPLATIN [Suspect]
     Active Substance: CARBOPLATIN
     Indication: Retinoblastoma
     Dates: start: 202203
  2. ETOPOSIDE [Suspect]
     Active Substance: ETOPOSIDE
     Indication: Retinoblastoma
     Dates: start: 202203
  3. TOPOTECAN [Suspect]
     Active Substance: TOPOTECAN HYDROCHLORIDE
     Indication: Retinoblastoma
     Dates: start: 202209
  4. MELPHALAN [Suspect]
     Active Substance: MELPHALAN
     Indication: Retinoblastoma
     Dates: start: 202203
  5. TOPOTECAN [Suspect]
     Active Substance: TOPOTECAN HYDROCHLORIDE
     Indication: Retinoblastoma
     Dates: start: 202210
  6. MELPHALAN [Suspect]
     Active Substance: MELPHALAN
     Indication: Retinoblastoma
     Dates: start: 202204
  7. MELPHALAN [Suspect]
     Active Substance: MELPHALAN
     Indication: Retinoblastoma
     Dates: start: 202204
  8. MELPHALAN [Suspect]
     Active Substance: MELPHALAN
     Indication: Retinoblastoma
     Dates: start: 202205
  9. MELPHALAN [Suspect]
     Active Substance: MELPHALAN
     Indication: Retinoblastoma
     Dates: start: 202205
  10. MELPHALAN [Suspect]
     Active Substance: MELPHALAN
     Indication: Retinoblastoma
     Dates: start: 202209
  11. MELPHALAN [Suspect]
     Active Substance: MELPHALAN
     Indication: Retinoblastoma
     Dates: start: 202210

REACTIONS (4)
  - Device failure [Recovered/Resolved]
  - Soft tissue necrosis [Unknown]
  - Staphylococcal infection [Unknown]
  - Off label use [Unknown]

NARRATIVE: CASE EVENT DATE: 20220301
